FAERS Safety Report 7945444-6 (Version None)
Quarter: 2011Q4

REPORT INFORMATION
  Report Type: 
  Country: None (occurrence: None)
  Receive Date: 20111122
  Receipt Date: 20111110
  Transmission Date: 20120403
  Serious: Yes (Hospitalization)
  Sender: FDA-Public Use
  Company Number: WAES 1111USA01454

PATIENT
  Age: 55 Year
  Sex: Female
  Weight: 55.3388 kg

DRUGS (3)
  1. CAP VORINOSTAT [Suspect]
     Indication: OVARIAN CANCER
  2. CARBOPLATIN [Suspect]
     Indication: OVARIAN CANCER
  3. TAXOL [Suspect]
     Indication: OVARIAN CANCER

REACTIONS (13)
  - LEUKOCYTOSIS [None]
  - BLOOD CHLORIDE DECREASED [None]
  - ABDOMINAL ABSCESS [None]
  - PROTEIN TOTAL INCREASED [None]
  - THROMBOCYTOSIS [None]
  - LOCALISED INTRAABDOMINAL FLUID COLLECTION [None]
  - ANAEMIA [None]
  - BLOOD PHOSPHORUS INCREASED [None]
  - ALANINE AMINOTRANSFERASE INCREASED [None]
  - ANASTOMOTIC LEAK [None]
  - HYDRONEPHROSIS [None]
  - BLOOD SODIUM DECREASED [None]
  - ASPARTATE AMINOTRANSFERASE INCREASED [None]
